FAERS Safety Report 7600868-1 (Version None)
Quarter: 2011Q3

REPORT INFORMATION
  Report Type: 
  Country: None (occurrence: None)
  Receive Date: 20110711
  Receipt Date: 20110705
  Transmission Date: 20111222
  Serious: Yes (Hospitalization, Other)
  Sender: FDA-Public Use
  Company Number: US-ELI_LILLY_AND_COMPANY-US201004000698

PATIENT
  Sex: Female
  Weight: 83.9 kg

DRUGS (5)
  1. BYETTA [Suspect]
     Dosage: UNK, UNKNOWN
     Route: 065
     Dates: start: 20060401, end: 20080401
  2. METFORMIN HCL [Concomitant]
     Indication: DIABETES MELLITUS
     Dosage: UNK
     Dates: start: 19970101
  3. ACTOS [Concomitant]
     Indication: DIABETES MELLITUS
     Dosage: 10 UG, BID
     Dates: start: 20080101, end: 20080901
  4. CRESTOR [Concomitant]
     Dosage: UNK
     Dates: start: 20080101
  5. GABAPENTIN [Concomitant]
     Indication: BACK PAIN
     Dosage: UNK
     Dates: start: 20060801

REACTIONS (1)
  - PANCREATITIS [None]
